FAERS Safety Report 8554634 (Version 3)
Quarter: 2014Q1

REPORT INFORMATION
  Report Type: Spontaneous
  Country: US (occurrence: None)
  Receive Date: 20120327
  Receipt Date: 20130724
  Transmission Date: 20141002
  Serious: Yes (Hospitalization, Other)
  Sender: FDA-Public Use
  Company Number: PHHY2011US30738

PATIENT
  Age: 70 Year
  Sex: Female

DRUGS (1)
  1. GLEEVEC [Suspect]
     Indication: SOFT TISSUE CANCER
     Route: 048
     Dates: start: 20110302

REACTIONS (16)
  - Urinary tract infection [None]
  - Asthenia [None]
  - Anaemia [None]
  - Oedema [None]
  - Gastrointestinal tract irritation [None]
  - Dysphagia [None]
  - Fluid retention [None]
  - Alopecia [None]
  - Soft tissue cancer [None]
  - Neoplasm recurrence [None]
  - Atelectasis [None]
  - Gastrointestinal tract irritation [None]
  - Asthenia [None]
  - Fatigue [None]
  - Abdominal pain upper [None]
  - Abdominal discomfort [None]
